FAERS Safety Report 25086800 (Version 1)
Quarter: 2025Q1

REPORT INFORMATION
  Report Type: Spontaneous
  Country: CN (occurrence: CN)
  Receive Date: 20250318
  Receipt Date: 20250318
  Transmission Date: 20250408
  Serious: Yes (Hospitalization, Other)
  Sender: RANBAXY
  Company Number: CN-SUN PHARMACEUTICAL INDUSTRIES LTD-2025R1-498780

PATIENT
  Age: 60 Year
  Sex: Female

DRUGS (5)
  1. ASPIRIN [Suspect]
     Active Substance: ASPIRIN
     Indication: Acute coronary syndrome
     Dosage: 100 MILLIGRAM, OD
     Route: 065
  2. ATORVASTATIN [Suspect]
     Active Substance: ATORVASTATIN
     Indication: Acute coronary syndrome
     Dosage: 20 MILLIGRAM, OD, AT NIGHT
     Route: 065
  3. ISOSORBIDE [Suspect]
     Active Substance: ISOSORBIDE
     Indication: Acute coronary syndrome
     Dosage: 20 MILLIGRAM, BID
     Route: 065
  4. TICAGRELOR [Suspect]
     Active Substance: TICAGRELOR
     Indication: Acute coronary syndrome
     Dosage: 90 MILLIGRAM, BID
     Route: 065
  5. METOPROLOL [Suspect]
     Active Substance: METOPROLOL
     Indication: Acute coronary syndrome
     Dosage: 6.25 MILLIGRAM, BID
     Route: 065

REACTIONS (2)
  - Angina unstable [Recovering/Resolving]
  - Condition aggravated [Unknown]
